FAERS Safety Report 6213107-3 (Version None)
Quarter: 2009Q2

REPORT INFORMATION
  Report Type: 
  Country: None (occurrence: None)
  Receive Date: 20090603
  Receipt Date: 20090526
  Transmission Date: 20091009
  Serious: Yes (Hospitalization)
  Sender: FDA-Public Use
  Company Number: B0566732A

PATIENT
  Sex: Female
  Weight: 58 kg

DRUGS (6)
  1. SERETIDE [Suspect]
     Indication: CHRONIC OBSTRUCTIVE PULMONARY DISEASE
     Dosage: 2PUFF TWICE PER DAY
     Route: 055
     Dates: start: 20060306
  2. VENTOLIN [Concomitant]
     Route: 055
  3. OLANZAPINE [Concomitant]
     Route: 048
  4. LORATADINE [Concomitant]
     Route: 048
  5. VALPROATE SODIUM [Concomitant]
     Route: 048
  6. TIOTROPIUM [Concomitant]
     Dosage: 18MCG PER DAY
     Route: 055

REACTIONS (1)
  - LUNG INFECTION [None]
